FAERS Safety Report 17357444 (Version 2)
Quarter: 2020Q1

REPORT INFORMATION
  Report Type: Report from Study
  Country: CO (occurrence: CO)
  Receive Date: 20200131
  Receipt Date: 20200324
  Transmission Date: 20200409
  Serious: Yes (Hospitalization)
  Sender: FDA-Public Use
  Company Number: CO-INCYTE CORPORATION-2019IN009607

PATIENT

DRUGS (2)
  1. JAKAVI [Suspect]
     Active Substance: RUXOLITINIB
     Dosage: 15 MG, Q12H
     Route: 048
     Dates: end: 201910
  2. JAKAVI [Suspect]
     Active Substance: RUXOLITINIB
     Indication: MYELOFIBROSIS
     Dosage: 20 MG, Q12H
     Route: 048
     Dates: start: 201906

REACTIONS (6)
  - Dizziness [Recovered/Resolved]
  - General physical condition abnormal [Recovered/Resolved]
  - Syncope [Recovered/Resolved]
  - General physical health deterioration [Unknown]
  - Decreased immune responsiveness [Unknown]
  - Haemoglobin decreased [Recovered/Resolved]
